FAERS Safety Report 17836263 (Version 1)
Quarter: 2020Q2

REPORT INFORMATION
  Report Type: Report from Study
  Country: US (occurrence: US)
  Receive Date: 20200528
  Receipt Date: 20200528
  Transmission Date: 20200714
  Serious: Yes (Hospitalization, Other)
  Sender: FDA-Public Use
  Company Number: US-BRISTOL-MYERS SQUIBB COMPANY-BMS-2020-039704

PATIENT

DRUGS (2)
  1. BLINDED ABATACEPT [Suspect]
     Active Substance: ABATACEPT
     Indication: VASCULITIS
     Dosage: UNK
     Route: 065
     Dates: start: 20181126
  2. PLACEBO [Suspect]
     Active Substance: UNSPECIFIED INGREDIENT
     Indication: VASCULITIS
     Dosage: UNK
     Route: 065
     Dates: start: 20181126

REACTIONS (3)
  - Leukopenia [Unknown]
  - Thrombocytopenia [Unknown]
  - Anaemia [Not Recovered/Not Resolved]

NARRATIVE: CASE EVENT DATE: 20200513
